FAERS Safety Report 11686811 (Version 1)
Quarter: 2015Q4

REPORT INFORMATION
  Report Type: Spontaneous
  Country: HR (occurrence: HR)
  Receive Date: 20151030
  Receipt Date: 20151030
  Transmission Date: 20160304
  Serious: Yes (Hospitalization)
  Sender: FDA-Public Use
  Company Number: HR-009507513-1510HRV010752

PATIENT
  Age: 25 Year
  Sex: Female

DRUGS (5)
  1. SUFENTANIL [Concomitant]
     Active Substance: SUFENTANIL
     Dosage: 2 ML, QD
     Dates: start: 20151009
  2. PROPOFOL. [Concomitant]
     Active Substance: PROPOFOL
     Dosage: 100 MG, QD
     Route: 042
     Dates: start: 20151009, end: 20151009
  3. REGLAN [Concomitant]
     Active Substance: METOCLOPRAMIDE HYDROCHLORIDE
     Dosage: 10 MG, QD
     Route: 042
     Dates: start: 20151009, end: 20151009
  4. MIDAZOLAM [Concomitant]
     Active Substance: MIDAZOLAM\MIDAZOLAM HYDROCHLORIDE
     Dosage: 2 MG, QD
     Route: 042
     Dates: start: 20151009
  5. ESMERON [Suspect]
     Active Substance: ROCURONIUM BROMIDE
     Indication: INDUCTION OF ANAESTHESIA
     Dosage: 50 MG, QD
     Route: 042
     Dates: start: 20151009, end: 20151009

REACTIONS (5)
  - Rash [Recovering/Resolving]
  - Piloerection [Recovering/Resolving]
  - Anaphylactoid reaction [Recovering/Resolving]
  - Hypotension [Recovering/Resolving]
  - Tachycardia [Recovering/Resolving]

NARRATIVE: CASE EVENT DATE: 20151009
